FAERS Safety Report 4902716-7 (Version None)
Quarter: 2006Q1

REPORT INFORMATION
  Report Type: 
  Country: None (occurrence: None)
  Receive Date: 20060207
  Receipt Date: 20060127
  Transmission Date: 20060701
  Serious: Yes (Hospitalization)
  Sender: FDA-Public Use
  Company Number: FR-JNJFOC-20060105908

PATIENT
  Age: 49 Year
  Sex: Female

DRUGS (3)
  1. REMICADE [Suspect]
     Indication: RHEUMATOID ARTHRITIS
     Route: 042
  2. NEO-MERCAZOLE TAB [Concomitant]
     Indication: THYROIDITIS
     Route: 048
     Dates: start: 20040101
  3. CLAMOXYL [Concomitant]
     Route: 048
     Dates: start: 20000101

REACTIONS (2)
  - ALOPECIA [None]
  - OEDEMA PERIPHERAL [None]
